FAERS Safety Report 21668025 (Version 1)
Quarter: 2022Q4

REPORT INFORMATION
  Report Type: Spontaneous
  Country: US (occurrence: US)
  Receive Date: 20221201
  Receipt Date: 20221201
  Transmission Date: 20230113
  Serious: Yes (Other)
  Sender: FDA-Public Use
  Company Number: US-NOVOPROD-985635

PATIENT
  Sex: Female

DRUGS (1)
  1. OZEMPIC [Suspect]
     Active Substance: SEMAGLUTIDE
     Indication: Diabetes mellitus inadequate control
     Dosage: UNK
     Route: 058

REACTIONS (4)
  - Liver disorder [Unknown]
  - General physical health deterioration [Recovering/Resolving]
  - Feeling abnormal [Recovering/Resolving]
  - Product supply issue [Recovered/Resolved]

NARRATIVE: CASE EVENT DATE: 20220101
